FAERS Safety Report 7107530-2 (Version None)
Quarter: 2010Q4

REPORT INFORMATION
  Report Type: 
  Country: None (occurrence: None)
  Receive Date: 20101117
  Receipt Date: 20101104
  Transmission Date: 20110411
  Serious: Yes (Hospitalization)
  Sender: FDA-Public Use
  Company Number: US-ELI_LILLY_AND_COMPANY-US201011001692

PATIENT
  Sex: Female

DRUGS (7)
  1. HUMALOG MIX 75/25 [Suspect]
     Indication: TYPE 2 DIABETES MELLITUS
     Dosage: 70 U, EACH MORNING
     Dates: start: 20080101
  2. HUMALOG MIX 75/25 [Suspect]
     Dosage: 32 U, AS NEEDED
     Dates: start: 20080101
  3. HUMALOG MIX 75/25 [Suspect]
     Dosage: 60 U, EACH EVENING
     Dates: start: 20080101
  4. HUMALOG MIX 75/25 [Suspect]
     Dosage: 70 U, EACH MORNING
     Dates: start: 20080101
  5. HUMALOG MIX 75/25 [Suspect]
     Dosage: 32 U, AS NEEDED
     Dates: start: 20080101
  6. HUMALOG MIX 75/25 [Suspect]
     Dosage: 60 U, EACH EVENING
     Dates: start: 20080101
  7. HUMALOG MIX 75/25 [Suspect]
     Dosage: 32 U, AS NEEDED
     Dates: start: 20080101

REACTIONS (5)
  - ASTHENIA [None]
  - FALL [None]
  - LIGAMENT INJURY [None]
  - PYREXIA [None]
  - SKIN INFECTION [None]
